FAERS Safety Report 8517646 (Version 8)
Quarter: 2013Q2

REPORT INFORMATION
  Report Type: Spontaneous
  Country: CA (occurrence: CA)
  Receive Date: 20120417
  Receipt Date: 20130410
  Transmission Date: 20140414
  Serious: Yes (Hospitalization, Other)
  Sender: FDA-Public Use
  Company Number: CA-ROCHE-1059822

PATIENT
  Age: 37 Year
  Sex: Female

DRUGS (8)
  1. XOLAIR [Suspect]
     Indication: ASTHMA
     Route: 058
     Dates: start: 20110811
  2. XOLAIR [Suspect]
     Route: 058
     Dates: start: 20111116
  3. XOLAIR [Suspect]
     Route: 058
     Dates: start: 20120326
  4. SPIRIVA [Concomitant]
  5. VENTOLIN [Concomitant]
  6. THEO-DUR [Concomitant]
  7. SYMBICORT [Concomitant]
  8. PREDNISONE [Concomitant]

REACTIONS (3)
  - Pulmonary fibrosis [Unknown]
  - Heart rate increased [Unknown]
  - Fatigue [Unknown]
